FAERS Safety Report 5241866-5 (Version None)
Quarter: 2007Q1

REPORT INFORMATION
  Report Type: 
  Country: None (occurrence: None)
  Receive Date: 20070212
  Receipt Date: 20070206
  Transmission Date: 20070707
  Serious: Yes (Death)
  Sender: FDA-Public Use
  Company Number: 2007SP002343

PATIENT
  Age: 53 Year
  Sex: Male

DRUGS (3)
  1. PEG-INTRON [Suspect]
     Indication: HEPATITIS C
     Dosage: 150 MCG;QW; SC
     Route: 058
     Dates: start: 20061020
  2. REBETOL [Suspect]
     Indication: HEPATITIS C
     Dosage: 600 MG;QAM; PO
     Route: 048
     Dates: start: 20061020
  3. REBETOL [Suspect]
     Indication: HEPATITIS C
     Dosage: 600 MG;QAM; PO
     Route: 048
     Dates: start: 20061020

REACTIONS (1)
  - TREATMENT NONCOMPLIANCE [None]
